FAERS Safety Report 7990994-X (Version None)
Quarter: 2011Q4

REPORT INFORMATION
  Report Type: 
  Country: None (occurrence: None)
  Receive Date: 20111219
  Receipt Date: 20111212
  Transmission Date: 20120403
  Serious: Yes (Death, Hospitalization)
  Sender: FDA-Public Use
  Company Number: DE-BRISTOL-MYERS SQUIBB COMPANY-16257495

PATIENT
  Age: 81 Year
  Sex: Male
  Weight: 62 kg

DRUGS (5)
  1. ERBITUX [Suspect]
     Indication: COLORECTAL CANCER METASTATIC
     Dosage: 250MG/M2 1PER WK:02-09AUG10,23AUG10,6SEP-22NOV10,27DEC10-17JAN11,30MAY11,,7NOV11, 22NOV11.
     Route: 042
     Dates: start: 20100719
  2. CAPECITABINE [Concomitant]
     Indication: COLORECTAL CANCER METASTATIC
     Route: 042
     Dates: start: 20110523
  3. LEUCOVORIN CALCIUM [Concomitant]
     Indication: COLORECTAL CANCER METASTATIC
     Route: 042
     Dates: start: 20100607, end: 20110111
  4. OXALIPLATIN [Concomitant]
     Indication: COLORECTAL CANCER METASTATIC
     Route: 042
     Dates: start: 20100607, end: 20110111
  5. FLUOROURACIL [Concomitant]
     Indication: COLORECTAL CANCER METASTATIC
     Dosage: 1 DF= BOLUS 400MG/M2, CONTINUOUS INF OF 2000MG/M2 OVER 46 H (MG/M2).
     Route: 042
     Dates: start: 20100607, end: 20110111

REACTIONS (3)
  - HYPOCALCAEMIA [None]
  - DEHYDRATION [None]
  - AZOTAEMIA [None]
